FAERS Safety Report 5583846-6 (Version None)
Quarter: 2008Q1

REPORT INFORMATION
  Report Type: 
  Country: None (occurrence: None)
  Receive Date: 20080108
  Receipt Date: 20071227
  Transmission Date: 20080703
  Serious: Yes (Death)
  Sender: FDA-Public Use
  Company Number: US-JNJFOC-20070804838

PATIENT
  Age: 6 Month
  Sex: Female

DRUGS (1)
  1. EXTRA STRENGTH TYLENOL [Suspect]
     Indication: SLEEP DISORDER THERAPY
     Dosage: DOSE UNKNOWN

REACTIONS (2)
  - CONTRAINDICATION TO MEDICAL TREATMENT [None]
  - INTENTIONAL OVERDOSE [None]
